FAERS Safety Report 17454578 (Version 1)
Quarter: 2020Q1

REPORT INFORMATION
  Report Type: Spontaneous
  Country: DE (occurrence: DE)
  Receive Date: 20200225
  Receipt Date: 20200225
  Transmission Date: 20200409
  Serious: Yes (Hospitalization)
  Sender: FDA-Public Use
  Company Number: DE-ASTRAZENECA-2020SE23770

PATIENT
  Age: 79 Year
  Sex: Female

DRUGS (16)
  1. METAMIZOL [Concomitant]
     Active Substance: METAMIZOLE SODIUM
     Dosage: 500 MG, 1-1-1-0
  2. TORASEMID [Concomitant]
     Active Substance: TORSEMIDE
     Dosage: 10 MG, 1-0-0-0
  3. URAPIDIL [Concomitant]
     Active Substance: URAPIDIL
     Dosage: 30 MG, 0-1-0-0
  4. ACTRAPID [Concomitant]
     Active Substance: INSULIN HUMAN
     Dosage: NK MG, NACH SCHEMA
  5. SPIRONOLACTON [Concomitant]
     Active Substance: SPIRONOLACTONE
     Dosage: 50 MG, 0.5-0-0-0
  6. LANTUS [Concomitant]
     Active Substance: INSULIN GLARGINE
     Dosage: NK MG, NACH SCHEMA
  7. ACETYLSALICYLIC ACID [Suspect]
     Active Substance: ASPIRIN
     Route: 065
  8. VERAPAMIL [Concomitant]
     Active Substance: VERAPAMIL HYDROCHLORIDE
     Dosage: 120 MG, 1-0-1-0
  9. TIOTROPIUMBROMID [Concomitant]
     Dosage: 18 ???G, 1-0-0-0
  10. RAMIPRIL. [Concomitant]
     Active Substance: RAMIPRIL
     Dosage: 5 MG, 1-0-1-0
  11. METFORMIN [Concomitant]
     Active Substance: METFORMIN HYDROCHLORIDE
     Dosage: 500 MG, 1-0-0-0
  12. PANTOPRAZOL [Concomitant]
     Active Substance: PANTOPRAZOLE SODIUM
     Dosage: 40 MG, 1-0-0-0
  13. MAGNESIUM [Concomitant]
     Active Substance: MAGNESIUM
     Dosage: UNKNOWN MG, 0-0-0-1
  14. FOSTER [Concomitant]
     Active Substance: BECLOMETHASONE\FORMOTEROL
     Dosage: 6|200 MG, 2-0-2-0
  15. TICAGRELOR. [Suspect]
     Active Substance: TICAGRELOR
     Route: 048
  16. MOVICOL [Concomitant]
     Active Substance: POLYETHYLENE GLYCOL 3350\POTASSIUM CHLORIDE\SODIUM BICARBONATE\SODIUM CHLORIDE
     Dosage: UNKNOWN MG, 1-0-0-0

REACTIONS (3)
  - Cough [Unknown]
  - Pyrexia [Unknown]
  - Haematochezia [Unknown]

NARRATIVE: CASE EVENT DATE: 20191110
